FAERS Safety Report 5802363-9 (Version None)
Quarter: 2008Q3

REPORT INFORMATION
  Report Type: 
  Country: None (occurrence: None)
  Receive Date: 20080702
  Receipt Date: 20080623
  Transmission Date: 20090109
  Serious: Yes (Other)
  Sender: FDA-Public Use
  Company Number: 028-20785-08061506

PATIENT
  Age: 85 Year
  Sex: Male

DRUGS (2)
  1. THALOMID [Suspect]
     Indication: LEUKAEMIA
     Dosage: 50 MG, OD, ORAL; 50MG-100MG, ALTERNATING DAYS, ORAL
     Route: 048
     Dates: start: 20080512, end: 20080601
  2. THALOMID [Suspect]
     Indication: LEUKAEMIA
     Dosage: 50 MG, OD, ORAL; 50MG-100MG, ALTERNATING DAYS, ORAL
     Route: 048
     Dates: start: 20080601, end: 20080616

REACTIONS (3)
  - BLINDNESS TRANSIENT [None]
  - PHOTOPSIA [None]
  - VISUAL ACUITY REDUCED [None]
